FAERS Safety Report 25647529 (Version 2)
Quarter: 2025Q4

REPORT INFORMATION
  Report Type: Spontaneous
  Country: EU (occurrence: EU)
  Receive Date: 20250806
  Receipt Date: 20251009
  Transmission Date: 20260118
  Serious: Yes (Other)
  Sender: ABBVIE
  Company Number: EU-PFIZER INC-PV202500091507

PATIENT
  Sex: Female

DRUGS (2)
  1. AVIBACTAM\AZTREONAM [Suspect]
     Active Substance: AVIBACTAM\AZTREONAM
     Indication: Enterobacter infection
     Route: 065
  2. AVIBACTAM\AZTREONAM [Suspect]
     Active Substance: AVIBACTAM\AZTREONAM
     Indication: Enterobacter infection
     Dosage: UNK
     Route: 065
     Dates: start: 2025, end: 2025

REACTIONS (4)
  - Enterobacter infection [Unknown]
  - Disease recurrence [Unknown]
  - Off label use [Unknown]
  - Febrile bone marrow aplasia [Unknown]

NARRATIVE: CASE EVENT DATE: 20250701
